FAERS Safety Report 21403514 (Version 1)
Quarter: 2022Q4

REPORT INFORMATION
  Report Type: Spontaneous
  Country: JP (occurrence: JP)
  Receive Date: 20221003
  Receipt Date: 20221003
  Transmission Date: 20230113
  Serious: Yes (Other)
  Sender: FDA-Public Use
  Company Number: JP-PFIZER INC-PV202200073460

PATIENT
  Age: 38 Year
  Sex: Male

DRUGS (8)
  1. BESPONSA [Suspect]
     Active Substance: INOTUZUMAB OZOGAMICIN
     Route: 042
  2. DOXORUBICIN [Suspect]
     Active Substance: DOXORUBICIN
  3. RITUXIMAB [Suspect]
     Active Substance: RITUXIMAB
  4. VINCRISTINE [Suspect]
     Active Substance: VINCRISTINE
  5. BLINATUMOMAB [Suspect]
     Active Substance: BLINATUMOMAB
  6. ETOPOSIDE [Suspect]
     Active Substance: ETOPOSIDE
  7. CYCLOPHOSPHAMIDE [Suspect]
     Active Substance: CYCLOPHOSPHAMIDE
  8. PREDNISOLONE [Suspect]
     Active Substance: PREDNISOLONE

REACTIONS (1)
  - Venoocclusive liver disease [Recovered/Resolved]
